FAERS Safety Report 7358639-X (Version None)
Quarter: 2011Q1

REPORT INFORMATION
  Report Type: 
  Country: None (occurrence: None)
  Receive Date: 20110317
  Receipt Date: 20110315
  Transmission Date: 20110831
  Serious: Yes (Other)
  Sender: FDA-Public Use
  Company Number: CH-ELI_LILLY_AND_COMPANY-CH201102007623

PATIENT
  Age: 28 Year
  Sex: Female
  Weight: 92 kg

DRUGS (3)
  1. CYMBALTA [Suspect]
     Indication: ANXIETY
     Dosage: 30 MG, DAILY (1/D)
     Route: 048
     Dates: start: 20090301, end: 20110201
  2. CYMBALTA [Suspect]
     Dosage: 15 MG, DAILY (1/D)
     Dates: start: 20110201, end: 20110224
  3. CYMBALTA [Suspect]
     Dosage: 30 MG, DAILY (1/D)
     Dates: start: 20110225

REACTIONS (9)
  - TENSION [None]
  - HEADACHE [None]
  - DECREASED APPETITE [None]
  - DIZZINESS [None]
  - SLEEP DISORDER [None]
  - WRONG TECHNIQUE IN DRUG USAGE PROCESS [None]
  - DRUG WITHDRAWAL SYNDROME [None]
  - NAUSEA [None]
  - DIARRHOEA [None]
